FAERS Safety Report 8449906-7 (Version None)
Quarter: 2012Q2

REPORT INFORMATION
  Report Type: 
  Country: None (occurrence: None)
  Receive Date: 20120620
  Receipt Date: 20120612
  Transmission Date: 20120825
  Serious: No
  Sender: FDA-Public Use
  Company Number: PHHY2012CH048838

PATIENT
  Age: 35 Year
  Sex: Female

DRUGS (1)
  1. METHERGINE [Suspect]
     Indication: HAEMORRHAGE
     Dosage: 1 DF, TID, USED FOR 10 DAYS
     Route: 048

REACTIONS (1)
  - MATERNAL EXPOSURE DURING PREGNANCY [None]
